FAERS Safety Report 9558940 (Version 1)
Quarter: 2013Q3

REPORT INFORMATION
  Report Type: Spontaneous
  Country: PH (occurrence: PH)
  Receive Date: 20130927
  Receipt Date: 20130927
  Transmission Date: 20140515
  Serious: Yes (Death)
  Sender: FDA-Public Use
  Company Number: PH-009507513-1309PHL010850

PATIENT
  Age: 82 Year
  Sex: Female

DRUGS (2)
  1. JANUMET [Suspect]
     Dosage: UNK
     Route: 048
  2. COZAAR [Concomitant]
     Route: 048

REACTIONS (1)
  - Diabetic complication [Fatal]
